FAERS Safety Report 8710888 (Version 3)
Quarter: 2014Q1

REPORT INFORMATION
  Report Type: Report from Study
  Country: AR (occurrence: AR)
  Receive Date: 20120807
  Receipt Date: 20140310
  Transmission Date: 20141002
  Serious: Yes (Death, Other)
  Sender: FDA-Public Use
  Company Number: PHHY2012AR067646

PATIENT
  Age: 63 Year
  Sex: Female

DRUGS (1)
  1. TOBI [Suspect]
     Indication: CYSTIC FIBROSIS
     Dosage: UNK
     Route: 055
     Dates: start: 2007

REACTIONS (8)
  - Cystic fibrosis [Fatal]
  - Acinetobacter test positive [Unknown]
  - Emphysema [Unknown]
  - Aphasia [Unknown]
  - Fatigue [Unknown]
  - Oedema [Unknown]
  - Feeling abnormal [Unknown]
  - Dyspnoea [Unknown]
